FAERS Safety Report 12684777 (Version 1)
Quarter: 2016Q3

REPORT INFORMATION
  Report Type: Spontaneous
  Country: US (occurrence: US)
  Receive Date: 20160825
  Receipt Date: 20160825
  Transmission Date: 20161109
  Serious: No
  Sender: FDA-Public Use
  Company Number: US-GLAXOSMITHKLINE-US2016122619

PATIENT
  Age: 46 Year
  Sex: Male

DRUGS (2)
  1. VOLTAREN [Suspect]
     Active Substance: DICLOFENAC SODIUM
     Indication: PAIN
  2. VOLTAREN [Suspect]
     Active Substance: DICLOFENAC SODIUM
     Indication: ARTHRITIS
     Dosage: UNK, 4 TO 6 TIMES A DAY
     Dates: start: 2011

REACTIONS (3)
  - Inappropriate schedule of drug administration [Unknown]
  - Intentional product misuse [Unknown]
  - Drug administered at inappropriate site [Unknown]
